FAERS Safety Report 9701539 (Version 1)
Quarter: 2013Q4

REPORT INFORMATION
  Report Type: Spontaneous
  Country: BR (occurrence: BR)
  Receive Date: 20131121
  Receipt Date: 20131121
  Transmission Date: 20140711
  Serious: Yes (Other)
  Sender: FDA-Public Use
  Company Number: BR-SA-2013SA117524

PATIENT
  Age: 75 Year
  Sex: Female
  Weight: 70 kg

DRUGS (9)
  1. LANTUS [Suspect]
     Indication: TYPE 2 DIABETES MELLITUS
     Route: 058
     Dates: start: 201301
  2. CLIKSTAR [Concomitant]
     Indication: DEVICE THERAPY
  3. EUTHYROX [Concomitant]
     Indication: THYROID DISORDER
     Dosage: STRENGTH: 75MG
     Dates: start: 2010
  4. SOMALGIN CARDIO [Concomitant]
     Indication: PROPHYLAXIS
     Dosage: STRENGTH: 100MG
     Dates: start: 2005
  5. CAPTOPRIL [Concomitant]
     Indication: POLYURIA
     Dosage: STRENGTH: 25MG
     Dates: start: 2005
  6. INDAPAMIDE [Concomitant]
     Indication: HYPERTENSION
     Dosage: STRENGTH: 1.5MG
     Dates: start: 2003
  7. CLINFAR [Concomitant]
     Indication: BLOOD CHOLESTEROL INCREASED
     Dosage: STRENGTH: 20MG
     Dates: start: 2010
  8. BETASERC [Concomitant]
     Indication: LABYRINTHITIS
     Dosage: STRENGTH: 24MG
     Dates: start: 201308
  9. HUMALOG [Concomitant]
     Indication: TYPE 2 DIABETES MELLITUS
     Dosage: DOSE: DEPENDS UPON GLYCEMIC NEEDS
     Dates: start: 201301

REACTIONS (4)
  - Neurological infection [Unknown]
  - Rash macular [Unknown]
  - Pruritus [Unknown]
  - Bone disorder [Unknown]
